FAERS Safety Report 20893270 (Version 1)
Quarter: 2022Q2

REPORT INFORMATION
  Report Type: Spontaneous
  Country: US (occurrence: US)
  Receive Date: 20220531
  Receipt Date: 20220531
  Transmission Date: 20220720
  Serious: No
  Sender: FDA-Public Use
  Company Number: US-CELGENE-USA-20211108369

PATIENT
  Age: 67 Year
  Sex: Female

DRUGS (2)
  1. POMALYST [Suspect]
     Active Substance: POMALIDOMIDE
     Indication: Plasma cell myeloma
     Dosage: DOSE: 4 MILLIGRAM
     Route: 048
     Dates: start: 202102
  2. POMALYST [Suspect]
     Active Substance: POMALIDOMIDE
     Dosage: DAILY DOSE : 2 ?UNIT DOSE : 2 ?2 MILLIGRAM
     Route: 048
     Dates: start: 202104

REACTIONS (2)
  - Product dose omission issue [Unknown]
  - Balance disorder [Unknown]

NARRATIVE: CASE EVENT DATE: 20211129
